FAERS Safety Report 16642298 (Version 1)
Quarter: 2019Q3

REPORT INFORMATION
  Report Type: Spontaneous
  Country: US (occurrence: US)
  Receive Date: 20190727
  Receipt Date: 20190727
  Transmission Date: 20191004
  Serious: Yes (Hospitalization, Disabling)
  Sender: FDA-Public Use
  Company Number: None

PATIENT
  Age: 25 Year
  Sex: Male
  Weight: 78.75 kg

DRUGS (4)
  1. ELAVIL [Concomitant]
     Active Substance: AMITRIPTYLINE HYDROCHLORIDE
  2. LORAZEPAM. [Concomitant]
     Active Substance: LORAZEPAM
  3. XEOMIN [Suspect]
     Active Substance: INCOBOTULINUMTOXINA
     Indication: TORTICOLLIS
     Dosage: ?          OTHER STRENGTH:DON^T KNOW;OTHER FREQUENCY:EVERY 3-4 MONTHS;?
     Route: 030
     Dates: start: 20130209, end: 20130209
  4. REGLAN [Concomitant]
     Active Substance: METOCLOPRAMIDE HYDROCHLORIDE

REACTIONS (5)
  - Asthenia [None]
  - Dyspnoea [None]
  - Botulism [None]
  - Fatigue [None]
  - Iatrogenic infection [None]

NARRATIVE: CASE EVENT DATE: 20130222
